FAERS Safety Report 8743232 (Version 3)
Quarter: 2013Q2

REPORT INFORMATION
  Report Type: Report from Study
  Country: FR (occurrence: FR)
  Receive Date: 20120824
  Receipt Date: 20130405
  Transmission Date: 20140414
  Serious: Yes (Other)
  Sender: FDA-Public Use
  Company Number: FR-GLAXOSMITHKLINE-B0775044B

PATIENT
  Age: 33 Year
  Sex: Male
  Weight: 69 kg

DRUGS (3)
  1. PAZOPANIB [Suspect]
     Indication: NEOPLASM
     Dosage: 400MG PER DAY
     Route: 048
     Dates: start: 20111123
  2. CISPLATIN [Suspect]
     Indication: NEOPLASM
     Dosage: 283.6MG CUMULATIVE DOSE
     Route: 042
     Dates: start: 20111201
  3. NEOMERCAZOLE [Concomitant]
     Route: 048
     Dates: start: 20120626

REACTIONS (1)
  - Forced expiratory volume decreased [Not Recovered/Not Resolved]
